FAERS Safety Report 8032616 (Version 2)
Quarter: 2013Q3

REPORT INFORMATION
  Report Type: Spontaneous
  Country: US (occurrence: US)
  Receive Date: 20110527
  Receipt Date: 20130711
  Transmission Date: 20140515
  Serious: Yes (Hospitalization, Other)
  Sender: FDA-Public Use
  Company Number: US200903003319

PATIENT
  Age: 53 Year
  Sex: Female
  Weight: 81.63 kg

DRUGS (31)
  1. BYETTA PEN DISPOSABLE [Suspect]
     Dosage: 10MCG/0.04ML
     Route: 065
     Dates: start: 20051005, end: 200711
  2. EXENATIDE UNK STRENGTH PEN, DISPOSABLE DEVICE [Concomitant]
  3. LEVEMIR [Concomitant]
     Indication: DIABETES MELLITUS
  4. LOTREL [Concomitant]
  5. VICODIN [Concomitant]
     Indication: SHOULDER OPERATION
  6. LANTUS [Concomitant]
  7. CRESTOR [Concomitant]
  8. ELAVIL [Concomitant]
  9. DEXTROSE [Concomitant]
     Route: 042
     Dates: start: 20080314
  10. OMEPRAZOLE [Concomitant]
  11. RANITIDINE HCL [Concomitant]
     Route: 048
  12. CIPRO [Concomitant]
  13. COUMADIN [Concomitant]
     Dosage: TABS
  14. COREG [Concomitant]
     Route: 048
  15. LISINOPRIL [Concomitant]
     Route: 048
  16. PRAVACOL [Concomitant]
  17. KLONOPIN [Concomitant]
  18. LORTAB [Concomitant]
     Dosage: 10MG-500MG?TABS,AS NEEDED
  19. DOXYCYCLINE [Concomitant]
  20. BACTRIM [Concomitant]
  21. ACETAMINOPHEN [Concomitant]
  22. AMITRIPTYLINE HCL [Concomitant]
     Dosage: TABS
     Route: 048
  23. PANTOPRAZOLE [Concomitant]
  24. INSULIN [Concomitant]
  25. FUROSEMIDE [Concomitant]
     Dosage: TABS
     Route: 048
  26. MIRALAX [Concomitant]
     Route: 048
  27. PAROXETINE HCL [Concomitant]
     Dosage: 1 TABS
     Route: 048
  28. PRAVASTATIN SODIUM [Concomitant]
     Route: 048
  29. PRILOSEC [Concomitant]
     Dosage: EVERY DAY BEFORE MEAL
     Route: 048
  30. TRAMADOL HCL [Concomitant]
     Dosage: TABS
     Route: 048
  31. AMITIZA [Concomitant]
     Route: 048
     Dates: end: 20130304

REACTIONS (8)
  - Pancreatitis [Unknown]
  - Abdominal discomfort [Unknown]
  - Nausea [Unknown]
  - Rotator cuff syndrome [Unknown]
  - Arthritis [Unknown]
  - Renal injury [Unknown]
  - Off label use [Recovered/Resolved]
  - Bile duct stone [Recovered/Resolved]
